FAERS Safety Report 11121246 (Version 1)
Quarter: 2015Q2

REPORT INFORMATION
  Report Type: Spontaneous
  Country: TR (occurrence: None)
  Receive Date: 20150515
  Receipt Date: 20150515
  Transmission Date: 20150821
  Serious: Yes (Hospitalization, Other)
  Sender: FDA-Public Use
  Company Number: TR-ZYDUS-007986

PATIENT
  Age: 42 Year
  Sex: Female

DRUGS (1)
  1. DIVALPROEX (DIVALPROEX) [Suspect]
     Active Substance: DIVALPROEX SODIUM
     Dosage: 1.0 DAYS

REACTIONS (4)
  - Thrombocytosis [None]
  - Pleural effusion [None]
  - Pericardial effusion [None]
  - Leukocytosis [None]
